FAERS Safety Report 15532740 (Version 1)
Quarter: 2018Q4

REPORT INFORMATION
  Report Type: Spontaneous
  Country: US (occurrence: US)
  Receive Date: 20181019
  Receipt Date: 20181019
  Transmission Date: 20190205
  Serious: Yes (Other)
  Sender: FDA-Public Use
  Company Number: US-TARO-2018TAR00754

PATIENT
  Age: 75 Year
  Sex: Female

DRUGS (1)
  1. CLORAZEPATE DIPOTASSIUM TABLETS USP 3.75 MG [Suspect]
     Active Substance: CLORAZEPATE DIPOTASSIUM

REACTIONS (1)
  - Seizure [Unknown]
